FAERS Safety Report 25656861 (Version 3)
Quarter: 2025Q3

REPORT INFORMATION
  Report Type: Report from Study
  Country: CN (occurrence: None)
  Receive Date: 20250807
  Receipt Date: 20250927
  Transmission Date: 20251020
  Serious: Yes (Hospitalization)
  Sender: JIANGSU HANSOH PHARMACEUTICAL GROUP CO., LTD.
  Company Number: CN-Hansoh-20252190014597

PATIENT
  Age: 64 Year
  Sex: Female
  Weight: 61 kg

DRUGS (6)
  1. PEMETREXED DISODIUM [Suspect]
     Active Substance: PEMETREXED DISODIUM
     Indication: Non-small cell lung cancer
     Dosage: 817.5MG,EVERY 3 WEEKS
     Route: 041
     Dates: start: 20250403, end: 20250627
  2. PEMETREXED DISODIUM [Suspect]
     Active Substance: PEMETREXED DISODIUM
  3. CARBOPLATIN [Suspect]
     Active Substance: CARBOPLATIN
     Indication: Non-small cell lung cancer
     Dosage: 501.6MG,EVERY 3 WEEKS
     Route: 041
     Dates: start: 20250403, end: 20250403
  4. CARBOPLATIN [Suspect]
     Active Substance: CARBOPLATIN
     Dosage: 360MG,EVERY 3 WEEKS
     Route: 041
     Dates: start: 20250424, end: 20250424
  5. CARBOPLATIN [Suspect]
     Active Substance: CARBOPLATIN
     Dosage: 349MG,EVERY 3 WEEKS
     Route: 041
     Dates: start: 20250424, end: 20250424
  6. CARBOPLATIN [Suspect]
     Active Substance: CARBOPLATIN
     Dosage: 320MG,EVERY 3 WEEKS
     Route: 041
     Dates: start: 20250424, end: 20250424

REACTIONS (1)
  - Palpitations [Recovered/Resolved]

NARRATIVE: CASE EVENT DATE: 20250721
